FAERS Safety Report 15908455 (Version 3)
Quarter: 2019Q2

REPORT INFORMATION
  Report Type: Report from Study
  Country: PL (occurrence: PL)
  Receive Date: 20190204
  Receipt Date: 20190611
  Transmission Date: 20190711
  Serious: Yes (Other)
  Sender: FDA-Public Use
  Company Number: PL-CHIESI USA, INC.-PL-2019CHI000036

PATIENT

DRUGS (3)
  1. CUROSURF [Suspect]
     Active Substance: PORACTANT ALFA
     Indication: NEONATAL RESPIRATORY DISTRESS SYNDROME
     Dosage: 2.3 ML, SINGLE
     Route: 039
     Dates: start: 20190119, end: 20190119
  2. CAFFEINE CITRATE. [Concomitant]
     Active Substance: CAFFEINE CITRATE
     Indication: INFANTILE APNOEA
     Dosage: 18 MG, QD
     Dates: start: 20190119
  3. CUROSURF [Suspect]
     Active Substance: PORACTANT ALFA
     Dosage: 2.3 ML, SINGLE
     Route: 039
     Dates: start: 20190119, end: 20190119

REACTIONS (4)
  - Inappropriate schedule of product administration [Recovered/Resolved]
  - Neonatal hypoxia [Recovered/Resolved]
  - Overdose [Unknown]
  - Product administration error [Recovered/Resolved]

NARRATIVE: CASE EVENT DATE: 20190119
